FAERS Safety Report 24303604 (Version 1)
Quarter: 2024Q3

REPORT INFORMATION
  Report Type: Spontaneous
  Country: US (occurrence: None)
  Receive Date: 20240909
  Receipt Date: 20240909
  Transmission Date: 20241016
  Serious: Yes (Disabling)
  Sender: Public
  Company Number: None

PATIENT
  Age: 82 Year
  Sex: Male
  Weight: 63 kg

DRUGS (6)
  1. PAXLOVID [Suspect]
     Active Substance: NIRMATRELVIR\RITONAVIR
     Dosage: 3 TABLETS TWICE A DAY ORAL
     Route: 048
     Dates: start: 20240902, end: 20240904
  2. METOPROLOL [Concomitant]
     Active Substance: METOPROLOL
  3. ROSUVASTATIN [Concomitant]
     Active Substance: ROSUVASTATIN\ROSUVASTATIN CALCIUM
  4. HYDROCHLOROTHIAZIDE [Concomitant]
     Active Substance: HYDROCHLOROTHIAZIDE
  5. lisinopropril [Concomitant]
  6. TYLENOL [Concomitant]
     Active Substance: ACETAMINOPHEN

REACTIONS (6)
  - Diarrhoea [None]
  - Hypophagia [None]
  - Dehydration [None]
  - Confusional state [None]
  - Balance disorder [None]
  - Asthenia [None]

NARRATIVE: CASE EVENT DATE: 20240903
